FAERS Safety Report 5495089-5 (Version None)
Quarter: 2007Q4

REPORT INFORMATION
  Report Type: 
  Country: None (occurrence: None)
  Receive Date: 20071024
  Receipt Date: 20071017
  Transmission Date: 20080405
  Serious: Yes (Other)
  Sender: FDA-Public Use
  Company Number: US-ROXANE LABORATORIES, INC-2007-BP-22885RO

PATIENT
  Sex: Male

DRUGS (1)
  1. DIGOXIN ORAL SOLUTION USP, 0.05 MG/ML [Suspect]
     Dosage: 0.142 ML OF 0.05 MG/ML SOLUTION
     Route: 042
     Dates: start: 20071016, end: 20071016

REACTIONS (1)
  - INCORRECT ROUTE OF DRUG ADMINISTRATION [None]
